FAERS Safety Report 18150831 (Version 1)
Quarter: 2020Q3

REPORT INFORMATION
  Report Type: Spontaneous
  Country: US (occurrence: US)
  Receive Date: 20200814
  Receipt Date: 20200814
  Transmission Date: 20201103
  Serious: Yes (Death)
  Sender: FDA-Public Use
  Company Number: None

PATIENT
  Age: 67 Year
  Sex: Female
  Weight: 73 kg

DRUGS (8)
  1. BUMEX [Concomitant]
     Active Substance: BUMETANIDE
  2. ALBUTEROL. [Concomitant]
     Active Substance: ALBUTEROL
  3. LOSARTAN. [Concomitant]
     Active Substance: LOSARTAN
  4. REMDESIVIR. [Suspect]
     Active Substance: REMDESIVIR
  5. TOCILIZUMAB. [Concomitant]
     Active Substance: TOCILIZUMAB
  6. LOVENOX [Concomitant]
     Active Substance: ENOXAPARIN SODIUM
  7. DEXAMETHADONE [Concomitant]
  8. TRAMADOL. [Concomitant]
     Active Substance: TRAMADOL

REACTIONS (3)
  - Disease progression [None]
  - Therapy cessation [None]
  - Endotracheal intubation [None]

NARRATIVE: CASE EVENT DATE: 20200807
